FAERS Safety Report 15439107 (Version 1)
Quarter: 2018Q3

REPORT INFORMATION
  Report Type: Spontaneous
  Country: US (occurrence: US)
  Receive Date: 20180924
  Receipt Date: 20180924
  Transmission Date: 20181010
  Serious: Yes (Other)
  Sender: FDA-Public Use
  Company Number: None

PATIENT
  Age: 32 Year
  Sex: Female
  Weight: 50 kg

DRUGS (5)
  1. DIPHENHYDRAMINE 25 MG IVP [Concomitant]
     Dates: start: 20180921, end: 20180921
  2. RITUXAN [Suspect]
     Active Substance: RITUXIMAB
     Indication: SYSTEMIC LUPUS ERYTHEMATOSUS
     Dosage: ?          OTHER FREQUENCY:ONE TIME INFUSION;?
     Route: 041
     Dates: start: 20180921, end: 20180921
  3. ODANSETRON 8 MG [Concomitant]
     Dates: start: 20180921, end: 20180921
  4. FAMOTIDINE 40 MG [Concomitant]
     Active Substance: FAMOTIDINE
     Dates: start: 20180921, end: 20180921
  5. MEPERIDINE 12.5 MG [Concomitant]
     Dates: start: 20180921, end: 20180921

REACTIONS (5)
  - Back pain [None]
  - Discomfort [None]
  - Restlessness [None]
  - Vomiting [None]
  - Nausea [None]

NARRATIVE: CASE EVENT DATE: 20180921
